FAERS Safety Report 9529409 (Version 3)
Quarter: 2013Q3

REPORT INFORMATION
  Report Type: Report from Study
  Country: US (occurrence: US)
  Receive Date: 20130917
  Receipt Date: 20130923
  Transmission Date: 20140515
  Serious: No
  Sender: FDA-Public Use
  Company Number: PHEH2013US017522

PATIENT
  Age: 56 Year
  Sex: Female
  Weight: 62.13 kg

DRUGS (14)
  1. GILENYA [Suspect]
     Indication: MULTIPLE SCLEROSIS
     Dosage: 0.5 MG, QD
     Route: 048
     Dates: start: 20130808, end: 20130813
  2. ANTIDEPRESSANTS [Interacting]
  3. EFFEXOR [Concomitant]
  4. ALPRAZOLAM [Concomitant]
     Indication: ANXIETY
     Dosage: 0.5 MG, HALF TO TWO TABLETS DAILY
     Route: 048
  5. AMITRIPTYLINE [Concomitant]
     Dosage: 1 DF, QHS
     Route: 048
  6. AMPYRA [Concomitant]
     Dosage: 1 DF, BID
     Route: 048
  7. BACLOFEN [Concomitant]
     Dosage: 1 DF, TID
     Route: 048
  8. FEMHRT [Concomitant]
     Route: 048
  9. FISH OIL [Concomitant]
     Dosage: 1 DF, QD
     Route: 048
  10. METROGEL [Concomitant]
     Dosage: 1 %, PRN
  11. NUVIGIL [Concomitant]
     Dosage: 1 DF, QD
     Route: 048
  12. SINGULAIR [Concomitant]
     Dosage: 1 DF, QD
     Route: 048
  13. VENLAFAXINE [Concomitant]
     Dosage: 1 DF, QD
     Route: 048
  14. ELIDEL [Concomitant]

REACTIONS (7)
  - Abdominal pain [Unknown]
  - Diarrhoea [Unknown]
  - Cardiac murmur [Unknown]
  - Abdominal discomfort [Unknown]
  - Blood pressure increased [Unknown]
  - Depression [Unknown]
  - Drug interaction [Unknown]
